FAERS Safety Report 8424169-7 (Version None)
Quarter: 2012Q2

REPORT INFORMATION
  Report Type: 
  Country: None (occurrence: None)
  Receive Date: 20120608
  Receipt Date: 20120220
  Transmission Date: 20120825
  Serious: No
  Sender: FDA-Public Use
  Company Number: US-ASTRAZENECA-2012SE12159

PATIENT
  Age: 55 Year
  Sex: Male

DRUGS (1)
  1. PULMICORT FLEXHALER [Suspect]
     Route: 055
     Dates: start: 20110201

REACTIONS (9)
  - VOMITING [None]
  - MALAISE [None]
  - RESPIRATORY TRACT CONGESTION [None]
  - NECK PAIN [None]
  - FATIGUE [None]
  - DISTURBANCE IN ATTENTION [None]
  - BLOOD PRESSURE SYSTOLIC INCREASED [None]
  - DYSPNOEA EXERTIONAL [None]
  - INSOMNIA [None]
